FAERS Safety Report 7405393-9 (Version None)
Quarter: 2011Q2

REPORT INFORMATION
  Report Type: 
  Country: None (occurrence: None)
  Receive Date: 20110411
  Receipt Date: 20110406
  Transmission Date: 20111010
  Serious: Yes (Death)
  Sender: FDA-Public Use
  Company Number: PHHY2011AR28822

PATIENT
  Sex: Female

DRUGS (1)
  1. DIOVAN [Suspect]
     Indication: HYPERTENSION
     Dosage: 320 MG, UNK

REACTIONS (4)
  - BLOOD PRESSURE DECREASED [None]
  - SUDDEN DEATH [None]
  - OEDEMA PERIPHERAL [None]
  - CHOLELITHOTOMY [None]
